FAERS Safety Report 20128739 (Version 1)
Quarter: 2021Q4

REPORT INFORMATION
  Report Type: Spontaneous
  Country: FR (occurrence: None)
  Receive Date: 20211130
  Receipt Date: 20211130
  Transmission Date: 20220303
  Serious: Yes (Hospitalization, Other)
  Sender: FDA-Public Use
  Company Number: FR-VistaPharm, Inc.-VER202111-002169

PATIENT
  Age: 10 Year
  Sex: Female

DRUGS (2)
  1. ACETAMINOPHEN\HYDROCODONE [Suspect]
     Active Substance: ACETAMINOPHEN\HYDROCODONE
     Indication: Lymphadenitis
     Dosage: UNKNOWN
     Route: 065
  2. IBUPROFEN [Suspect]
     Active Substance: IBUPROFEN
     Indication: Lymphadenitis
     Dosage: UNKNOWN
     Route: 065

REACTIONS (4)
  - Bronchiolitis obliterans syndrome [Recovered/Resolved]
  - Respiratory failure [Recovered/Resolved]
  - Chronic respiratory failure [Recovered/Resolved]
  - Toxic epidermal necrolysis [Recovered/Resolved]
